FAERS Safety Report 5109186-7 (Version None)
Quarter: 2006Q3

REPORT INFORMATION
  Report Type: 
  Country: None (occurrence: None)
  Receive Date: 20060918
  Receipt Date: 20060829
  Transmission Date: 20061208
  Serious: Yes (Death)
  Sender: FDA-Public Use
  Company Number: US200605000494

PATIENT
  Age: 73 Year
  Sex: Male
  Weight: 49.4 kg

DRUGS (5)
  1. FORTEO [Suspect]
     Indication: OSTEOPOROSIS
     Dosage: 20 UG
     Dates: start: 20031001
  2. FORTEO [Concomitant]
  3. ANTIBIOTICS [Concomitant]
  4. PREDNISONE TAB [Concomitant]
  5. ARAVA [Concomitant]

REACTIONS (4)
  - DENTAL TREATMENT [None]
  - PHARMACEUTICAL PRODUCT COMPLAINT [None]
  - PNEUMONIA [None]
  - POSTOPERATIVE INFECTION [None]
